FAERS Safety Report 15454398 (Version 1)
Quarter: 2018Q4

REPORT INFORMATION
  Report Type: Spontaneous
  Country: US (occurrence: US)
  Receive Date: 20181002
  Receipt Date: 20181002
  Transmission Date: 20190204
  Serious: Yes (Other)
  Sender: FDA-Public Use
  Company Number: US-ENDO PHARMACEUTICALS INC-2018-041560

PATIENT
  Age: 66 Year
  Sex: Male
  Weight: 68.03 kg

DRUGS (3)
  1. AVEED [Suspect]
     Active Substance: TESTOSTERONE UNDECANOATE
     Dosage: UNK UNKNOWN, THIRD INJECTION
     Route: 065
     Dates: start: 20180822
  2. AVEED [Suspect]
     Active Substance: TESTOSTERONE UNDECANOATE
     Indication: BLOOD TESTOSTERONE DECREASED
     Dosage: UNK UNKNOWN, FIRST INJECTION
     Route: 065
     Dates: start: 20180516
  3. AVEED [Suspect]
     Active Substance: TESTOSTERONE UNDECANOATE
     Dosage: UNK UNKNOWN, SECOND INJECTION
     Route: 065
     Dates: start: 20180613

REACTIONS (2)
  - Joint dislocation [Not Recovered/Not Resolved]
  - Loss of consciousness [Not Recovered/Not Resolved]

NARRATIVE: CASE EVENT DATE: 20180916
